FAERS Safety Report 7595994-X (Version None)
Quarter: 2011Q3

REPORT INFORMATION
  Report Type: 
  Country: None (occurrence: None)
  Receive Date: 20110707
  Receipt Date: 20110628
  Transmission Date: 20111222
  Serious: Yes (Other)
  Sender: FDA-Public Use
  Company Number: PHHY2011ES57173

PATIENT
  Age: 6 Year
  Sex: Female

DRUGS (2)
  1. METHYLPHENIDATE [Suspect]
     Indication: ATTENTION DEFICIT/HYPERACTIVITY DISORDER
     Dosage: 10 MG, UNK
  2. METHYLPHENIDATE [Suspect]
     Dosage: 20 MG, UNK

REACTIONS (2)
  - PANIC ATTACK [None]
  - HALLUCINATION, VISUAL [None]
